FAERS Safety Report 7083506-9 (Version None)
Quarter: 2010Q4

REPORT INFORMATION
  Report Type: 
  Country: None (occurrence: None)
  Receive Date: 20101027
  Receipt Date: 20101015
  Transmission Date: 20110411
  Serious: Yes (Other)
  Sender: FDA-Public Use
  Company Number: 2010EN000301

PATIENT
  Age: 26 Decade
  Sex: Male
  Weight: 3 kg

DRUGS (2)
  1. ABELCET [Suspect]
     Indication: SYSTEMIC CANDIDA
     Dosage: 3 MG; QD; IV
     Route: 042
     Dates: start: 20100605, end: 20100610
  2. TEICOPLANIN (TEICOPLANIN) [Suspect]
     Indication: NEONATAL INFECTION
     Dosage: 15 MG; ; IV
     Route: 042
     Dates: start: 20100605, end: 20100610

REACTIONS (3)
  - HEPATIC ENZYME INCREASED [None]
  - LIVER DISORDER [None]
  - THROMBOCYTOPENIA [None]
